FAERS Safety Report 5811853-4 (Version None)
Quarter: 2008Q3

REPORT INFORMATION
  Report Type: 
  Country: None (occurrence: None)
  Receive Date: 20080716
  Receipt Date: 20080710
  Transmission Date: 20090109
  Serious: Yes (Hospitalization)
  Sender: FDA-Public Use
  Company Number: BR-BRISTOL-MYERS SQUIBB COMPANY-14192645

PATIENT
  Age: 69 Year
  Sex: Male

DRUGS (8)
  1. ABATACEPT [Suspect]
     Indication: RHEUMATOID ARTHRITIS
     Route: 042
     Dates: start: 20030417, end: 20080414
  2. HYDROXYCHLOROQUINE SULFATE [Concomitant]
     Dates: start: 20020101
  3. PREDNISONE TAB [Concomitant]
     Dates: start: 20020201
  4. ACETYLSALICYLIC ACID SRT [Concomitant]
     Dates: start: 20080219
  5. FLUTAMIDE [Concomitant]
  6. IRON [Concomitant]
     Dates: start: 20020827
  7. VITAMIN B COMPLEX CAP [Concomitant]
     Dates: start: 20051129
  8. FOLIC ACID [Concomitant]
     Dates: start: 20051123

REACTIONS (1)
  - EXTREMITY NECROSIS [None]
